FAERS Safety Report 15688064 (Version 1)
Quarter: 2018Q4

REPORT INFORMATION
  Report Type: Spontaneous
  Country: PL (occurrence: PL)
  Receive Date: 20181205
  Receipt Date: 20181205
  Transmission Date: 20190205
  Serious: Yes (Other)
  Sender: FDA-Public Use
  Company Number: PL-BIOGEN-2018BI00664888

PATIENT
  Age: 37 Year
  Sex: Female

DRUGS (1)
  1. AVONEX [Suspect]
     Active Substance: INTERFERON BETA-1A
     Indication: MULTIPLE SCLEROSIS
     Route: 030
     Dates: start: 201408, end: 201708

REACTIONS (5)
  - Hemiparesis [Unknown]
  - Gait disturbance [Unknown]
  - Romberg test positive [Unknown]
  - Gait spastic [Unknown]
  - Chronic fatigue syndrome [Unknown]

NARRATIVE: CASE EVENT DATE: 201708
